FAERS Safety Report 21192878 (Version 1)
Quarter: 2022Q3

REPORT INFORMATION
  Report Type: Spontaneous
  Country: US (occurrence: US)
  Receive Date: 20220810
  Receipt Date: 20220810
  Transmission Date: 20221026
  Serious: Yes (Other)
  Sender: FDA-Public Use
  Company Number: US-CELLTRION INC.-2022US009066

PATIENT

DRUGS (1)
  1. INFLECTRA [Suspect]
     Active Substance: INFLIXIMAB-DYYB
     Indication: Rheumatoid arthritis
     Dosage: DOSE 450MG INTRAVENOUSLY INFUSED -THIS WAS PATIENTS^ SECOND LOADING DOSE.
     Route: 042
     Dates: start: 20220505

REACTIONS (3)
  - Rash [Unknown]
  - Infusion related reaction [Unknown]
  - Product quality issue [Unknown]

NARRATIVE: CASE EVENT DATE: 20220606
